FAERS Safety Report 12861251 (Version 1)
Quarter: 2016Q4

REPORT INFORMATION
  Report Type: Spontaneous
  Country: CA (occurrence: CA)
  Receive Date: 20161019
  Receipt Date: 20161019
  Transmission Date: 20170207
  Serious: Yes (Hospitalization, Other)
  Sender: FDA-Public Use
  Company Number: CA-PAR PHARMACEUTICAL COMPANIES-2016SCPR015991

PATIENT
  Age: 69 Year
  Sex: Female

DRUGS (6)
  1. ADRENALIN [Suspect]
     Active Substance: EPINEPHRINE
     Indication: ANAPHYLACTIC REACTION
     Dosage: 1 DF, UNKNOWN
     Route: 065
  2. TOPIRAMATE. [Concomitant]
     Active Substance: TOPIRAMATE
     Indication: PRODUCT USE ISSUE
     Dosage: UNK, UNKNOWN
     Route: 065
  3. ADRENALIN [Suspect]
     Active Substance: EPINEPHRINE
     Indication: ARTHROPOD STING
     Dosage: 1 DF, UNKNOWN
     Route: 065
  4. FLUOXETINE [Concomitant]
     Active Substance: FLUOXETINE HYDROCHLORIDE
     Indication: PRODUCT USE ISSUE
     Dosage: UNK, UNKNOWN
     Route: 065
  5. APO-AMITRIPTYLINE [Concomitant]
     Active Substance: AMITRIPTYLINE HYDROCHLORIDE
     Indication: PRODUCT USE ISSUE
     Dosage: UNK, UNKNOWN
     Route: 065
  6. ATENOLOL. [Concomitant]
     Active Substance: ATENOLOL
     Indication: PRODUCT USE ISSUE
     Dosage: UNK, UNKNOWN
     Route: 065

REACTIONS (6)
  - Anaphylactic reaction [Recovered/Resolved]
  - Anxiety [Recovered/Resolved]
  - Abasia [Recovered/Resolved]
  - Aphasia [Recovered/Resolved]
  - Tremor [Recovered/Resolved]
  - Dyspnoea [Recovered/Resolved]
